FAERS Safety Report 22132610 (Version 1)
Quarter: 2023Q1

REPORT INFORMATION
  Report Type: Spontaneous
  Country: US (occurrence: US)
  Receive Date: 20230323
  Receipt Date: 20230323
  Transmission Date: 20230418
  Serious: Yes (Hospitalization, Other)
  Sender: FDA-Public Use
  Company Number: US-TEVA-2023-US-2867503

PATIENT
  Age: 89 Year
  Sex: Female

DRUGS (4)
  1. TORSEMIDE [Suspect]
     Active Substance: TORSEMIDE
     Indication: Cardiac failure congestive
     Dosage: 10 MILLIGRAM DAILY;
     Route: 065
  2. CYMBALTA [Concomitant]
     Active Substance: DULOXETINE HYDROCHLORIDE
     Indication: Arthritis
     Route: 065
  3. LOSARTAN [Concomitant]
     Active Substance: LOSARTAN
     Indication: Cardiac disorder
     Route: 065
  4. CARVEDILOL [Concomitant]
     Active Substance: CARVEDILOL
     Indication: Product used for unknown indication
     Route: 065

REACTIONS (9)
  - Hospitalisation [Unknown]
  - Kidney infection [Unknown]
  - Blister [Unknown]
  - Blood creatinine increased [Unknown]
  - Incontinence [Unknown]
  - Uterine prolapse [Unknown]
  - Product after taste [Unknown]
  - Constipation [Unknown]
  - Feeling abnormal [Unknown]
